FAERS Safety Report 24704775 (Version 1)
Quarter: 2024Q4

REPORT INFORMATION
  Report Type: Report from Study
  Country: CA (occurrence: CA)
  Receive Date: 20241206
  Receipt Date: 20241206
  Transmission Date: 20250115
  Serious: Yes (Other)
  Sender: Alvotech
  Company Number: CA-JAMP PHARMA CORPORATION-2024-JAM-CA-02139

PATIENT
  Age: 37 Year
  Sex: Male

DRUGS (1)
  1. SIMLANDI [Suspect]
     Active Substance: ADALIMUMAB-RYVK
     Indication: Psoriatic arthropathy
     Dosage: UNK, EVERY 2 WEEKS
     Route: 058
     Dates: start: 20231010

REACTIONS (6)
  - Psoriatic arthropathy [Unknown]
  - Anxiety [Unknown]
  - Illness [Unknown]
  - Product dose omission issue [Unknown]
  - Product dispensing issue [Unknown]
  - Inappropriate schedule of product administration [Unknown]

NARRATIVE: CASE EVENT DATE: 20241118
